FAERS Safety Report 20690001 (Version 1)
Quarter: 2022Q2

REPORT INFORMATION
  Report Type: Spontaneous
  Country: CN (occurrence: CN)
  Receive Date: 20220408
  Receipt Date: 20220408
  Transmission Date: 20220720
  Serious: Yes (Other)
  Sender: FDA-Public Use
  Company Number: CN-JNJFOC-20220362407

PATIENT
  Sex: Female

DRUGS (1)
  1. IMODIUM [Suspect]
     Active Substance: LOPERAMIDE HYDROCHLORIDE
     Indication: Diarrhoea
     Dosage: PATIENT TOOK 2 CAPSULES AT THE TIME DIARRHEA HAPPENED AND TOOK 1 CAPSULE EVERY TWO HOURS
     Route: 065

REACTIONS (4)
  - Ileus paralytic [Not Recovered/Not Resolved]
  - Intestinal obstruction [Not Recovered/Not Resolved]
  - Product use issue [Unknown]
  - Off label use [Unknown]
